FAERS Safety Report 9206105 (Version 2)
Quarter: 2013Q4

REPORT INFORMATION
  Report Type: Spontaneous
  Country: US (occurrence: US)
  Receive Date: 20130403
  Receipt Date: 20131210
  Transmission Date: 20140711
  Serious: Yes (Other)
  Sender: FDA-Public Use
  Company Number: US-BAYER-2013-040288

PATIENT
  Age: 22 Year
  Sex: Female

DRUGS (2)
  1. YASMIN [Suspect]
     Dosage: UNK
     Dates: start: 2006, end: 2009
  2. OCELLA [Suspect]
     Dosage: UNK
     Dates: start: 2009, end: 2010

REACTIONS (3)
  - Cholecystectomy [None]
  - Injury [None]
  - Cholecystitis acute [None]
